FAERS Safety Report 8994384 (Version 1)
Quarter: 2012Q4

REPORT INFORMATION
  Report Type: Spontaneous
  Country: US (occurrence: None)
  Receive Date: 20121227
  Receipt Date: 20121227
  Transmission Date: 20130627
  Serious: Yes (Other)
  Sender: FDA-Public Use
  Company Number: None

PATIENT
  Sex: Female
  Weight: 72.58 kg

DRUGS (8)
  1. TARCEVA [Suspect]
     Indication: LUNG CANCER
     Dosage: 100mg q d po
     Route: 048
     Dates: start: 20111201, end: 20121206
  2. LOSARTAN/HCTZ [Concomitant]
  3. NIFEDIPINE [Concomitant]
  4. PROPRANOLOL CR [Concomitant]
  5. CALCIUM + VIT D [Concomitant]
  6. MULTI VIT [Concomitant]
  7. ALPRAZOLAM [Concomitant]
  8. PREMARIN VAG. CRM [Concomitant]

REACTIONS (3)
  - Rash [None]
  - Localised infection [None]
  - Urinary tract infection [None]
